FAERS Safety Report 6122102-4 (Version None)
Quarter: 2009Q1

REPORT INFORMATION
  Report Type: 
  Country: None (occurrence: None)
  Receive Date: 20090318
  Receipt Date: 20090309
  Transmission Date: 20090719
  Serious: Yes (Death, Hospitalization, Disabling, Other)
  Sender: FDA-Public Use
  Company Number: AU-CELGENEUS-008-20785-09030720

PATIENT
  Age: 62 Year
  Sex: Male

DRUGS (9)
  1. THALIDOMIDE [Suspect]
     Indication: MULTIPLE MYELOMA
     Route: 048
     Dates: start: 20030101
  2. PAMIDRONATE DISODIUM [Suspect]
     Indication: DRUG USE FOR UNKNOWN INDICATION
     Route: 051
     Dates: end: 20030801
  3. ZOLEDRONIC ACID [Suspect]
     Indication: DRUG USE FOR UNKNOWN INDICATION
     Route: 051
     Dates: start: 20030801, end: 20060101
  4. PREDNISOLONE [Concomitant]
     Indication: MULTIPLE MYELOMA
     Route: 065
     Dates: start: 20030101, end: 20060801
  5. PREDNISOLONE [Concomitant]
     Route: 065
     Dates: start: 20060801
  6. PREDNISOLONE [Concomitant]
     Route: 040
     Dates: start: 20060801
  7. CYCLOPHOSPHAMIDE [Concomitant]
     Indication: DRUG USE FOR UNKNOWN INDICATION
     Route: 065
     Dates: start: 20060801, end: 20070101
  8. MELPHALAN [Concomitant]
     Indication: DRUG USE FOR UNKNOWN INDICATION
     Route: 065
     Dates: start: 20070101
  9. VALACYCLOVIR [Concomitant]
     Indication: HERPES ZOSTER
     Route: 065
     Dates: start: 20000101

REACTIONS (9)
  - ANKLE FRACTURE [None]
  - FEMUR FRACTURE [None]
  - FISTULA [None]
  - NEUROPATHY PERIPHERAL [None]
  - OSTEONECROSIS [None]
  - RIB FRACTURE [None]
  - SEPSIS [None]
  - SEPTIC SHOCK [None]
  - TIBIA FRACTURE [None]
